FAERS Safety Report 8475108-4 (Version None)
Quarter: 2012Q2

REPORT INFORMATION
  Report Type: 
  Country: None (occurrence: None)
  Receive Date: 20120622
  Receipt Date: 20120611
  Transmission Date: 20120825
  Serious: Yes (Hospitalization, Other)
  Sender: FDA-Public Use
  Company Number: 2012P1040965

PATIENT
  Age: 21 Year
  Sex: Male

DRUGS (3)
  1. METHAQUALONE TAB [Suspect]
     Dosage: 250 MG;BID;
  2. PHENYTOIN [Suspect]
     Indication: EPILEPSY
     Dosage: 300 MG;QD; 300 MG;QD;
  3. PHENYTOIN [Suspect]
     Indication: EPILEPSY
     Dosage: 300 MG;QD; 300 MG;QD;

REACTIONS (13)
  - DYSARTHRIA [None]
  - HYPOTONIA [None]
  - VISION BLURRED [None]
  - CEREBELLAR ATROPHY [None]
  - TOXICITY TO VARIOUS AGENTS [None]
  - ATAXIA [None]
  - INTENTION TREMOR [None]
  - NYSTAGMUS [None]
  - ANTICONVULSANT DRUG LEVEL ABOVE THERAPEUTIC [None]
  - DRUG INTERACTION [None]
  - GRAND MAL CONVULSION [None]
  - COORDINATION ABNORMAL [None]
  - GAIT DISTURBANCE [None]
